FAERS Safety Report 8533237-0 (Version None)
Quarter: 2012Q3

REPORT INFORMATION
  Report Type: 
  Country: None (occurrence: None)
  Receive Date: 20120724
  Receipt Date: 20120718
  Transmission Date: 20120928
  Serious: Yes (Death)
  Sender: FDA-Public Use
  Company Number: FR-PFIZER INC-2012172936

PATIENT
  Age: 70 Year
  Sex: Male

DRUGS (7)
  1. SUFENTANIL CITRATE [Suspect]
     Indication: INDUCTION OF ANAESTHESIA
     Dosage: 10 UG, SINGLE
     Route: 051
     Dates: start: 20120605, end: 20120605
  2. SUCCINYLCHOLINE CHLORIDE [Suspect]
     Indication: GENERAL ANAESTHESIA
     Dosage: 60 MG, SINGLE
     Route: 042
     Dates: start: 20120605, end: 20120605
  3. KETAMINE HCL [Suspect]
     Indication: INDUCTION OF ANAESTHESIA
     Dosage: 20 MG, SINGLE
     Route: 051
     Dates: start: 20120605, end: 20120605
  4. XANAX [Suspect]
     Indication: PREMEDICATION
     Dosage: 0.50 MG, SINGLE
     Route: 048
     Dates: start: 20120605, end: 20120605
  5. PROPOFOL [Suspect]
     Indication: INDUCTION OF ANAESTHESIA
     Dosage: 300 MG, SINGLE
     Route: 051
     Dates: start: 20120605, end: 20120605
  6. ZANTAC [Suspect]
     Indication: PREMEDICATION
     Dosage: 300 MG, SINGLE
     Route: 048
     Dates: start: 20120605, end: 20120605
  7. ALFUZOSIN HYDROCHLORIDE [Concomitant]
     Dosage: 1 DF, 1X/DAY
     Route: 048

REACTIONS (4)
  - ANAPHYLACTIC SHOCK [None]
  - CIRCULATORY COLLAPSE [None]
  - VENTRICULAR EXTRASYSTOLES [None]
  - BRONCHOSPASM [None]
